FAERS Safety Report 5333461-4 (Version None)
Quarter: 2007Q2

REPORT INFORMATION
  Report Type: 
  Country: None (occurrence: None)
  Receive Date: 20070522
  Receipt Date: 20070522
  Transmission Date: 20071010
  Serious: No
  Sender: FDA-Public Use
  Company Number: None

PATIENT
  Age: 8 Year
  Sex: Male
  Weight: 37.195 kg

DRUGS (1)
  1. RISPERDAL [Suspect]
     Indication: ASPERGER'S DISORDER
     Dosage: .5 MG ONCE PER DAY PO
     Route: 048
     Dates: start: 20060312, end: 20070520

REACTIONS (3)
  - ACTIVITIES OF DAILY LIVING IMPAIRED [None]
  - EYE MOVEMENT DISORDER [None]
  - TARDIVE DYSKINESIA [None]
